FAERS Safety Report 5534296-X (Version None)
Quarter: 2007Q4

REPORT INFORMATION
  Report Type: 
  Country: None (occurrence: None)
  Receive Date: 20071203
  Receipt Date: 20071203
  Transmission Date: 20080405
  Serious: No
  Sender: FDA-Public Use
  Company Number: None

PATIENT
  Sex: Female
  Weight: 77.1115 kg

DRUGS (4)
  1. CARBIDOPA AND LEVODOPA [Suspect]
     Dosage: 50/200 4X QID
     Dates: start: 20050101
  2. REQUIP [Concomitant]
  3. KLONOPIN [Concomitant]
  4. SINEMET [Concomitant]

REACTIONS (2)
  - DRUG INEFFECTIVE [None]
  - THERAPEUTIC RESPONSE UNEXPECTED WITH DRUG SUBSTITUTION [None]
